FAERS Safety Report 4824202-5 (Version None)
Quarter: 2005Q4

REPORT INFORMATION
  Report Type: 
  Country: None (occurrence: None)
  Receive Date: 20051108
  Receipt Date: 20051030
  Transmission Date: 20060501
  Serious: Yes (Hospitalization, Other)
  Sender: FDA-Public Use
  Company Number: 2005149680

PATIENT
  Age: 4 Year
  Sex: Male
  Weight: 17.6903 kg

DRUGS (2)
  1. ZITHROMAX [Suspect]
     Indication: SCARLET FEVER
     Dosage: (200 MG), ORAL
     Route: 048
     Dates: end: 20051029
  2. BENADRYL [Suspect]
     Indication: SWELLING FACE
     Dosage: ORAL
     Route: 048

REACTIONS (3)
  - BURNS THIRD DEGREE [None]
  - DRUG HYPERSENSITIVITY [None]
  - STEVENS-JOHNSON SYNDROME [None]
